FAERS Safety Report 10049330 (Version 3)
Quarter: 2014Q2

REPORT INFORMATION
  Report Type: Other
  Country: US (occurrence: US)
  Receive Date: 20140401
  Receipt Date: 20140603
  Transmission Date: 20141212
  Serious: No
  Sender: FDA-Public Use
  Company Number: US-LUPIN PHARMACEUTICALS INC.-E2B_00001859

PATIENT
  Age: 72 Year
  Sex: Female
  Weight: 51.3 kg

DRUGS (6)
  1. ETHAMBUTOL HYDROCHLORIDE TABLETS USP 400MG [Suspect]
     Indication: MYCOBACTERIUM AVIUM COMPLEX INFECTION
     Dosage: 800MG
     Dates: start: 20120614, end: 20130801
  2. RIFAMPIN [Concomitant]
     Indication: MYCOBACTERIUM AVIUM COMPLEX INFECTION
     Dates: start: 20120614, end: 20130801
  3. AZITHROMYCIN [Concomitant]
     Indication: MYCOBACTERIUM AVIUM COMPLEX INFECTION
     Dates: start: 201208, end: 20130830
  4. CIPROFLOXACIN [Concomitant]
     Indication: MYCOBACTERIUM AVIUM COMPLEX INFECTION
     Dates: start: 20120614, end: 20130801
  5. XANAX [Concomitant]
     Indication: ANXIETY
  6. TRETINOIN [Concomitant]
     Indication: SKIN DISORDER
     Route: 061

REACTIONS (2)
  - Weight decreased [Not Recovered/Not Resolved]
  - Drug ineffective [Not Recovered/Not Resolved]
